FAERS Safety Report 19824796 (Version 1)
Quarter: 2021Q3

REPORT INFORMATION
  Report Type: Spontaneous
  Country: US (occurrence: US)
  Receive Date: 20210913
  Receipt Date: 20210913
  Transmission Date: 20211014
  Serious: Yes (Hospitalization)
  Sender: FDA-Public Use
  Company Number: None

PATIENT
  Age: 4 Year
  Sex: Female

DRUGS (5)
  1. THICK IT [Concomitant]
     Dates: start: 20210311
  2. ALDURAZYME [Suspect]
     Active Substance: LARONIDASE
     Indication: MUCOPOLYSACCHARIDOSIS I
     Dosage: ?          OTHER FREQUENCY:ONCE A WEEK;?
     Route: 042
     Dates: start: 20210325
  3. FLUTICASONE. [Concomitant]
     Active Substance: FLUTICASONE
     Dates: start: 20210718
  4. CETIRIZINE [Concomitant]
     Active Substance: CETIRIZINE HYDROCHLORIDE
     Dates: start: 20210718
  5. EPHINEPHRINE [Concomitant]
     Active Substance: EPINEPHRINE
     Dates: start: 20210831

REACTIONS (3)
  - Urticaria [None]
  - Swelling face [None]
  - Varicella [None]

NARRATIVE: CASE EVENT DATE: 20210814
